FAERS Safety Report 8070743 (Version 3)
Quarter: 2013Q2

REPORT INFORMATION
  Report Type: Spontaneous
  Country: US (occurrence: None)
  Receive Date: 20110727
  Receipt Date: 20130416
  Transmission Date: 20140414
  Serious: Yes (Other)
  Sender: FDA-Public Use
  Company Number: ACO_25859_2011

PATIENT
  Age: 59 Year
  Sex: Female

DRUGS (12)
  1. AMPYRA [Suspect]
     Indication: GAIT DISTURBANCE
     Route: 048
     Dates: start: 20110516
  2. AVONEX [Concomitant]
  3. CARVEDILOL (CARVEDILOL) [Concomitant]
  4. CLONAZEPAM [Concomitant]
  5. CRESTOR [Concomitant]
  6. CYMBALTA [Concomitant]
  7. IBUPROFEN (IBUPROFEN) [Concomitant]
  8. LAMOTRIGINE (LAMOTRIGINE) [Concomitant]
  9. OMEPRAZOLE [Concomitant]
  10. METFORMIN HYDROCHLORIDE [Concomitant]
  11. NAMENDA [Concomitant]
  12. LOSARTAN (LOSARTAN) [Suspect]

REACTIONS (5)
  - Convulsion [None]
  - Dizziness [None]
  - Nausea [None]
  - Hyperhidrosis [None]
  - Vomiting [None]
